FAERS Safety Report 8475905-5 (Version None)
Quarter: 2012Q2

REPORT INFORMATION
  Report Type: 
  Country: None (occurrence: None)
  Receive Date: 20120628
  Receipt Date: 20120619
  Transmission Date: 20120825
  Serious: Yes (Hospitalization)
  Sender: FDA-Public Use
  Company Number: US-ASTRAZENECA-2011SE24947

PATIENT
  Age: 83 Year
  Sex: Female

DRUGS (2)
  1. NEXIUM [Suspect]
     Route: 048
  2. NEXIUM [Suspect]
     Route: 048

REACTIONS (5)
  - INTENTIONAL DRUG MISUSE [None]
  - FALL [None]
  - MEMORY IMPAIRMENT [None]
  - DRUG DOSE OMISSION [None]
  - MALAISE [None]
